FAERS Safety Report 9984232 (Version 1)
Quarter: 2014Q1

REPORT INFORMATION
  Report Type: Report from Study
  Country: US (occurrence: US)
  Receive Date: 20140307
  Receipt Date: 20140307
  Transmission Date: 20141002
  Serious: No
  Sender: FDA-Public Use
  Company Number: US-ALEXION-A200901466

PATIENT
  Sex: Male

DRUGS (2)
  1. SOLIRIS [Suspect]
     Indication: PAROXYSMAL NOCTURNAL HAEMOGLOBINURIA
     Dosage: UNK
     Route: 042
  2. ERYTHROPOIETIN [Concomitant]
     Indication: PRODUCT USED FOR UNKNOWN INDICATION
     Dosage: AN INJECTION EVERY 10 DAYS
     Route: 065

REACTIONS (5)
  - Yellow skin [Unknown]
  - Odynophagia [Unknown]
  - Fatigue [Unknown]
  - Haemoglobin decreased [Unknown]
  - Dyspnoea [Unknown]
